FAERS Safety Report 4598731-6 (Version None)
Quarter: 2005Q1

REPORT INFORMATION
  Report Type: 
  Country: None (occurrence: None)
  Receive Date: 20050304
  Receipt Date: 20041012
  Transmission Date: 20050727
  Serious: Yes (Death)
  Sender: FDA-Public Use
  Company Number: GB-GLAXOSMITHKLINE-B0347929A

PATIENT
  Age: 74 Year
  Sex: Male
  Weight: 80 kg

DRUGS (4)
  1. AUGMENTIN '125' [Suspect]
     Indication: PROPHYLAXIS
     Dosage: 120MG SINGLE DOSE
     Route: 042
     Dates: start: 20040704, end: 20040704
  2. BENDROFLUAZIDE [Concomitant]
     Indication: HYPERTENSION
     Route: 065
  3. AMLODIPINE [Concomitant]
     Indication: HYPERTENSION
     Route: 065
  4. SILDENAFIL [Concomitant]
     Route: 065

REACTIONS (4)
  - ANAPHYLACTOID REACTION [None]
  - CARDIAC ARREST [None]
  - RECTAL CANCER [None]
  - TRYPTASE INCREASED [None]
